FAERS Safety Report 4492652-5 (Version None)
Quarter: 2004Q4

REPORT INFORMATION
  Report Type: 
  Country: None (occurrence: None)
  Receive Date: 20041028
  Receipt Date: 20041015
  Transmission Date: 20050328
  Serious: Yes (Hospitalization)
  Sender: FDA-Public Use
  Company Number: 2004-01683

PATIENT
  Age: 75 Year
  Sex: Female

DRUGS (1)
  1. IMMUCYST (BCG - IT (CONNAUGHT), AVENTIS PASTEUR LTD., LOT NOT REP,MT [Suspect]
     Indication: BLADDER CANCER
     Dosage: I VES., BLADDER
     Route: 043
     Dates: start: 20040301

REACTIONS (11)
  - BOVINE TUBERCULOSIS [None]
  - BRONCHITIS [None]
  - DIALYSIS [None]
  - FEELING ABNORMAL [None]
  - HYPERTENSION [None]
  - INTERSTITIAL LUNG DISEASE [None]
  - LUNG INFILTRATION [None]
  - PAIN [None]
  - RENAL DISORDER [None]
  - RENAL IMPAIRMENT [None]
  - RESPIRATORY DISORDER [None]
